FAERS Safety Report 8366351-3 (Version None)
Quarter: 2012Q2

REPORT INFORMATION
  Report Type: 
  Country: None (occurrence: None)
  Receive Date: 20120517
  Receipt Date: 20120514
  Transmission Date: 20120825
  Serious: Yes (Death)
  Sender: FDA-Public Use
  Company Number: AU-SANOFI-AVENTIS-2012SA022228

PATIENT
  Age: 84 Year
  Sex: Male
  Weight: 73.8 kg

DRUGS (14)
  1. CABAZITAXEL [Suspect]
     Indication: PROSTATE CANCER
     Route: 041
     Dates: start: 20111129, end: 20111129
  2. METOPROLOL TARTRATE [Concomitant]
     Route: 048
     Dates: start: 20000101
  3. ACETAMINOPHEN W/ CODEINE [Concomitant]
     Route: 048
     Dates: start: 20111001
  4. ZOMETA [Concomitant]
     Route: 042
     Dates: start: 20110701
  5. ZOLADEX [Concomitant]
     Route: 058
     Dates: start: 20090601
  6. PEGFILGRASTIM [Concomitant]
     Route: 058
     Dates: start: 20120314, end: 20120314
  7. CABAZITAXEL [Suspect]
     Route: 041
     Dates: start: 20120313, end: 20120313
  8. ASPIRIN [Concomitant]
     Route: 048
     Dates: start: 20000101
  9. PEGFILGRASTIM [Concomitant]
     Route: 058
     Dates: start: 20111221, end: 20111221
  10. PEGFILGRASTIM [Concomitant]
     Route: 058
     Dates: start: 20120111, end: 20120111
  11. PEGFILGRASTIM [Concomitant]
     Route: 058
     Dates: start: 20120201, end: 20120201
  12. PREDNISONE TAB [Suspect]
     Indication: PROSTATE CANCER
     Route: 048
     Dates: start: 20111129, end: 20120325
  13. LANOXIN [Concomitant]
     Route: 048
     Dates: start: 20000101
  14. PEGFILGRASTIM [Concomitant]
     Route: 058
     Dates: start: 20120222, end: 20120222

REACTIONS (1)
  - DEATH [None]
